FAERS Safety Report 6069399-7 (Version None)
Quarter: 2009Q1

REPORT INFORMATION
  Report Type: 
  Country: None (occurrence: None)
  Receive Date: 20090206
  Receipt Date: 20090129
  Transmission Date: 20090719
  Serious: Yes (Disabling, Other)
  Sender: FDA-Public Use
  Company Number: TR-PFIZER INC-2008155478

PATIENT

DRUGS (1)
  1. CHAMPIX [Suspect]
     Indication: SMOKING CESSATION THERAPY

REACTIONS (12)
  - ABNORMAL DREAMS [None]
  - BLINDNESS UNILATERAL [None]
  - BRUXISM [None]
  - CHEST PAIN [None]
  - DEPRESSED MOOD [None]
  - DRY EYE [None]
  - DYSPNOEA [None]
  - ERECTILE DYSFUNCTION [None]
  - INSOMNIA [None]
  - SPEECH DISORDER [None]
  - SUICIDAL IDEATION [None]
  - VISION BLURRED [None]
